FAERS Safety Report 9238359 (Version 1)
Quarter: 2013Q2

REPORT INFORMATION
  Report Type: Spontaneous
  Country: US (occurrence: US)
  Receive Date: 20130418
  Receipt Date: 20130418
  Transmission Date: 20140414
  Serious: Yes (Other)
  Sender: FDA-Public Use
  Company Number: US-JNJFOC-20130405678

PATIENT
  Age: 4 Decade
  Sex: Female

DRUGS (3)
  1. TYLENOL [Suspect]
     Route: 048
  2. TYLENOL [Suspect]
     Indication: PRODUCT USED FOR UNKNOWN INDICATION
     Dosage: ONCE AT 6AM AND ONCE AT 1:01PM
     Route: 048
     Dates: start: 20130326
  3. EXCEDRIN SINUS HEADACHE [Suspect]
     Indication: HEADACHE
     Route: 048
     Dates: start: 20130326

REACTIONS (4)
  - Kidney infection [Recovering/Resolving]
  - Tremor [Recovering/Resolving]
  - Feeling cold [Recovering/Resolving]
  - Skin warm [Recovering/Resolving]
